FAERS Safety Report 7215146-2 (Version None)
Quarter: 2011Q1

REPORT INFORMATION
  Report Type: 
  Country: None (occurrence: None)
  Receive Date: 20110104
  Receipt Date: 20110104
  Transmission Date: 20110831
  Serious: Yes (Life-Threatening, Other)
  Sender: FDA-Public Use
  Company Number: None

PATIENT

DRUGS (1)
  1. HEPARIN [Suspect]

REACTIONS (6)
  - TREMOR [None]
  - DYSPNOEA [None]
  - CHILLS [None]
  - APPARENT DEATH [None]
  - DRY MOUTH [None]
  - ABDOMINAL PAIN UPPER [None]
